FAERS Safety Report 9944031 (Version 1)
Quarter: 2014Q1

REPORT INFORMATION
  Report Type: Report from Study
  Country: US (occurrence: US)
  Receive Date: 20140303
  Receipt Date: 20140303
  Transmission Date: 20141002
  Serious: Yes (Hospitalization)
  Sender: FDA-Public Use
  Company Number: US-ABBVIE-13P-163-1052728-00

PATIENT
  Age: 37 Year
  Sex: Male
  Weight: 93.52 kg

DRUGS (5)
  1. HUMIRA [Suspect]
     Indication: RHEUMATOID ARTHRITIS
     Dates: start: 201206, end: 201209
  2. HUMIRA [Suspect]
     Dates: start: 20130204
  3. METHOTREXATE [Concomitant]
     Indication: RHEUMATOID ARTHRITIS
     Dates: start: 201212
  4. FOLIC ACID [Concomitant]
     Indication: DRUG THERAPY
     Dates: start: 201212
  5. LORTAB [Concomitant]
     Indication: PAIN

REACTIONS (2)
  - Viral infection [Recovered/Resolved]
  - Back pain [Not Recovered/Not Resolved]
